FAERS Safety Report 7097485-1 (Version None)
Quarter: 2010Q4

REPORT INFORMATION
  Report Type: 
  Country: None (occurrence: None)
  Receive Date: 20101111
  Receipt Date: 20101005
  Transmission Date: 20110411
  Serious: Yes (Death, Other)
  Sender: FDA-Public Use
  Company Number: PHHY2010FR58373

PATIENT
  Sex: Female

DRUGS (6)
  1. ILARIS [Suspect]
     Dosage: 150 MG
     Dates: start: 20090901
  2. ILARIS [Suspect]
     Dosage: 100 MG
  3. ILARIS [Suspect]
     Dosage: UNK
  4. ILARIS [Suspect]
     Dosage: UNK
  5. ILARIS [Suspect]
     Dosage: UNK
     Dates: start: 20100617
  6. ZOLPIDEM [Suspect]
     Dosage: UNK

REACTIONS (5)
  - CARDIAC ARREST [None]
  - COMPLETED SUICIDE [None]
  - DYSPNOEA EXERTIONAL [None]
  - RALES [None]
  - RESUSCITATION [None]
